FAERS Safety Report 16441568 (Version 1)
Quarter: 2019Q2

REPORT INFORMATION
  Report Type: Spontaneous
  Country: US (occurrence: US)
  Receive Date: 20190617
  Receipt Date: 20190617
  Transmission Date: 20190711
  Serious: No
  Sender: FDA-Public Use
  Company Number: US-BRISTOL-MYERS SQUIBB COMPANY-BMS-2019-056652

PATIENT
  Age: 59 Year
  Sex: Male
  Weight: 88.44 kg

DRUGS (1)
  1. SPRYCEL [Suspect]
     Active Substance: DASATINIB
     Indication: LUNG NEOPLASM MALIGNANT
     Dosage: 50 MILLIGRAM, TAKES 2 AT ONE TIME DAILY
     Route: 048
     Dates: start: 20190607

REACTIONS (3)
  - Nasopharyngitis [Unknown]
  - Product use in unapproved indication [Unknown]
  - Chills [Unknown]

NARRATIVE: CASE EVENT DATE: 20190607
